FAERS Safety Report 6977296-5 (Version None)
Quarter: 2010Q3

REPORT INFORMATION
  Report Type: 
  Country: None (occurrence: None)
  Receive Date: 20100910
  Receipt Date: 20100903
  Transmission Date: 20110219
  Serious: Yes (Other)
  Sender: FDA-Public Use
  Company Number: US-BAYER-201032670NA

PATIENT
  Age: 40 Year
  Sex: Female
  Weight: 41 kg

DRUGS (19)
  1. CIPRO [Suspect]
     Indication: PRODUCT USED FOR UNKNOWN INDICATION
     Route: 065
  2. HUMIRA [Concomitant]
     Indication: CROHN'S DISEASE
     Dosage: 40MG/0.8ML PRE-FILLED SYRINGE
     Route: 065
     Dates: start: 20060101
  3. IBUPROFEN [Concomitant]
     Indication: RHEUMATOID ARTHRITIS
     Route: 065
     Dates: start: 20100101
  4. BENADRYL [Concomitant]
     Indication: MULTIPLE ALLERGIES
  5. ACETAMINOPHEN [Concomitant]
     Indication: MULTIPLE ALLERGIES
  6. PHENYLPROPANOLAMINE HYDROCHLORIDE [Concomitant]
     Indication: MULTIPLE ALLERGIES
  7. ASACOL [Concomitant]
  8. ERYTHROMYCIN [Concomitant]
  9. LEVAQUIN [Concomitant]
  10. PENICILLIN [Concomitant]
  11. REMICADE [Concomitant]
  12. SKELAXIN [Concomitant]
  13. SULFA [Concomitant]
  14. FLAGYL [Concomitant]
  15. LORATADINE [Concomitant]
     Indication: MULTIPLE ALLERGIES
  16. CARISOPRODOL [Concomitant]
     Indication: RHEUMATOID ARTHRITIS
  17. MELOXICAM [Concomitant]
     Indication: RHEUMATOID ARTHRITIS
  18. ESOMEPRAZOLE MAGNESIUM [Concomitant]
     Indication: GASTRIC ULCER
  19. VALIUM [Concomitant]
     Indication: MUSCLE SPASMS

REACTIONS (1)
  - ANAPHYLACTIC REACTION [None]
